FAERS Safety Report 4308961-6 (Version None)
Quarter: 2004Q1

REPORT INFORMATION
  Report Type: 
  Country: None (occurrence: None)
  Receive Date: 20040227
  Receipt Date: 20040219
  Transmission Date: 20041129
  Serious: Yes (Other)
  Sender: FDA-Public Use
  Company Number: 200410099BNE

PATIENT
  Age: 94 Year
  Sex: Male

DRUGS (4)
  1. ASPIRIN [Suspect]
     Indication: CEREBROVASCULAR ACCIDENT PROPHYLAXIS
     Dosage: 75 MG, TOTAL DAILY, ORAL
     Route: 048
     Dates: start: 20031230, end: 20040121
  2. SIMVASTATIN [Suspect]
     Indication: HYPERCHOLESTEROLAEMIA
     Dosage: 20 MG, TOTAL DAILY, ORAL
     Route: 048
     Dates: start: 20031230, end: 20040121
  3. SOLPADOL [Concomitant]
  4. FOLIC ACID [Concomitant]

REACTIONS (1)
  - THROMBOCYTOPENIA [None]
